FAERS Safety Report 8718018 (Version 2)
Quarter: 2012Q4

REPORT INFORMATION
  Report Type: 
  Country: US (occurrence: US)
  Receive Date: 20120810
  Receipt Date: 20120925
  Transmission Date: 20130627
  Serious: Yes (Hospitalization)
  Sender: FDA-Public Use
  Company Number: US-BRISTOL-MYERS SQUIBB COMPANY-16842304

PATIENT
  Age: 46 Year
  Sex: Female

DRUGS (8)
  1. IXEMPRA [Suspect]
     Indication: BREAST CANCER
     Dosage: No of dose:2
last dose:5Jul12
     Dates: start: 20120613
  2. CYMBALTA [Concomitant]
  3. METFORMIN [Concomitant]
  4. LEVOTHYROXINE [Concomitant]
  5. METOPROLOL [Concomitant]
  6. POTASSIUM [Concomitant]
  7. PRAVASTATIN SODIUM [Concomitant]
  8. VITAMIN D [Concomitant]
     Dosage: 1DF = 400 units

REACTIONS (2)
  - Pericardial effusion [Not Recovered/Not Resolved]
  - Malignant neoplasm progression [Unknown]
